FAERS Safety Report 7262079-1 (Version None)
Quarter: 2011Q1

REPORT INFORMATION
  Report Type: 
  Country: None (occurrence: None)
  Receive Date: 20110130
  Receipt Date: 20101210
  Transmission Date: 20110831
  Serious: No
  Sender: FDA-Public Use
  Company Number: US-ABBOTT-10P-163-0691372-00

PATIENT
  Sex: Male
  Weight: 79.45 kg

DRUGS (5)
  1. MERCAPTOPURINE [Concomitant]
     Indication: CROHN'S DISEASE
  2. WELLBUTRIN [Concomitant]
     Indication: DEPRESSION
     Dates: start: 20090901
  3. HUMIRA [Suspect]
     Indication: CROHN'S DISEASE
     Dates: start: 20091201, end: 20101101
  4. HUMIRA [Suspect]
     Dates: start: 20101201
  5. PRILOSEC [Concomitant]
     Indication: GASTRIC PH DECREASED
     Dates: start: 20090101

REACTIONS (7)
  - BRONCHITIS [None]
  - NASAL MUCOSAL DISCOLOURATION [None]
  - DRUG DOSE OMISSION [None]
  - SINUSITIS [None]
  - NASOPHARYNGITIS [None]
  - COUGH [None]
  - HAEMATOCHEZIA [None]
